FAERS Safety Report 8031705-1 (Version None)
Quarter: 2012Q1

REPORT INFORMATION
  Report Type: 
  Country: None (occurrence: None)
  Receive Date: 20120109
  Receipt Date: 20120105
  Transmission Date: 20120608
  Serious: Yes (Life-Threatening, Other)
  Sender: FDA-Public Use
  Company Number: GB-ASTRAZENECA-2012SE00319

PATIENT
  Age: 46 Year
  Sex: Female

DRUGS (4)
  1. LIDOCAINE [Suspect]
     Indication: LOCAL ANAESTHESIA
     Route: 040
     Dates: start: 20111214
  2. TRIAMCINOLONE ACETONIDE [Suspect]
     Indication: PRODUCT USED FOR UNKNOWN INDICATION
     Dosage: 50 MG/ 5ML
     Route: 014
  3. CHIROCAINE [Suspect]
     Indication: LOCAL ANAESTHESIA
     Dosage: 5 MG/ML, ONE DF
     Route: 040
     Dates: start: 20111214
  4. CHIROCAINE [Suspect]
     Dosage: 5 MG/ML, 5 DF
     Route: 040
     Dates: start: 20111214

REACTIONS (4)
  - OEDEMA MOUTH [None]
  - DYSPNOEA [None]
  - LIP SWELLING [None]
  - ANAPHYLACTIC REACTION [None]
